FAERS Safety Report 4828886-7 (Version None)
Quarter: 2005Q4

REPORT INFORMATION
  Report Type: 
  Country: None (occurrence: None)
  Receive Date: 20051114
  Receipt Date: 20051114
  Transmission Date: 20060501
  Serious: Yes (Death)
  Sender: FDA-Public Use
  Company Number: None

PATIENT
  Age: 12 Year
  Sex: Female
  Weight: 40.8237 kg

DRUGS (2)
  1. RISPERDAL [Suspect]
     Indication: DEPRESSION
     Dosage: 1 MG RISPERDAL
     Dates: end: 20050123
  2. ZOLOFT [Suspect]
     Indication: BIPOLAR DISORDER
     Dosage: 50 MG ZOLOFT

REACTIONS (1)
  - ARRHYTHMIA [None]
